FAERS Safety Report 6284305-8 (Version None)
Quarter: 2009Q3

REPORT INFORMATION
  Report Type: 
  Country: None (occurrence: None)
  Receive Date: 20090727
  Receipt Date: 20090721
  Transmission Date: 20100115
  Serious: Yes (Hospitalization, Other)
  Sender: FDA-Public Use
  Company Number: JP-JNJFOC-20090609265

PATIENT
  Age: 64 Year
  Sex: Male

DRUGS (7)
  1. RISPERDAL [Suspect]
     Indication: DELIRIUM
     Route: 048
  2. VALPROATE SODIUM [Suspect]
     Indication: DRUG USE FOR UNKNOWN INDICATION
     Route: 048
  3. TAKEPRON [Suspect]
     Indication: DRUG USE FOR UNKNOWN INDICATION
     Route: 048
  4. LASIX [Concomitant]
     Route: 065
  5. LIVACT [Concomitant]
     Route: 048
  6. LAC-B [Concomitant]
     Route: 048
  7. WARFARIN SODIUM [Concomitant]
     Route: 048

REACTIONS (4)
  - CONDITION AGGRAVATED [None]
  - HYPOPROTEINAEMIA [None]
  - OFF LABEL USE [None]
  - PANCYTOPENIA [None]
